FAERS Safety Report 11923074 (Version 1)
Quarter: 2016Q1

REPORT INFORMATION
  Report Type: Report from Study
  Country: US (occurrence: US)
  Receive Date: 20160117
  Receipt Date: 20160117
  Transmission Date: 20160526
  Serious: Yes (Hospitalization)
  Sender: FDA-Public Use
  Company Number: US-BIOGEN-2012BI031774

PATIENT
  Age: 18 Year
  Sex: Male

DRUGS (1)
  1. AVONEX [Suspect]
     Active Substance: INTERFERON BETA-1A
     Indication: MULTIPLE SCLEROSIS
     Route: 030
     Dates: start: 20120723, end: 201211

REACTIONS (14)
  - Optic neuritis [Recovered/Resolved]
  - Anxiety [Unknown]
  - Malaise [Recovered/Resolved]
  - Pain [Recovered/Resolved]
  - Decreased activity [Recovered/Resolved]
  - Chest pain [Recovered/Resolved]
  - Swollen tongue [Recovered/Resolved]
  - Tremor [Unknown]
  - Multiple sclerosis relapse [Recovered/Resolved]
  - Visual field defect [Not Recovered/Not Resolved]
  - Pyrexia [Not Recovered/Not Resolved]
  - Hypersomnia [Recovered/Resolved]
  - Hypertension [Unknown]
  - Headache [Unknown]

NARRATIVE: CASE EVENT DATE: 20120723
